FAERS Safety Report 23074846 (Version 1)
Quarter: 2023Q4

REPORT INFORMATION
  Report Type: Spontaneous
  Country: US (occurrence: None)
  Receive Date: 20231017
  Receipt Date: 20231017
  Transmission Date: 20240109
  Serious: Yes (Other)
  Sender: FDA-Public Use
  Company Number: None

PATIENT
  Age: 42 Year
  Sex: Female
  Weight: 88.2 kg

DRUGS (1)
  1. AJOVY [Suspect]
     Active Substance: FREMANEZUMAB-VFRM
     Indication: Migraine
     Dosage: OTHER QUANTITY : 1 INJECTION;?OTHER FREQUENCY : ONCE EVERY 28 DAYS;?
     Route: 058
     Dates: start: 20230916

REACTIONS (5)
  - Pruritus [None]
  - Urticaria [None]
  - Application site reaction [None]
  - Discomfort [None]
  - Dermatitis contact [None]

NARRATIVE: CASE EVENT DATE: 20231016
